FAERS Safety Report 7464367-2 (Version None)
Quarter: 2011Q2

REPORT INFORMATION
  Report Type: 
  Country: None (occurrence: None)
  Receive Date: 20110509
  Receipt Date: 20110502
  Transmission Date: 20111010
  Serious: Yes (Other)
  Sender: FDA-Public Use
  Company Number: US-TEVA-279464USA

PATIENT
  Sex: Female

DRUGS (2)
  1. SEVOFLURANE [Suspect]
     Indication: GENERAL ANAESTHESIA
  2. PROPOFOL [Suspect]
     Indication: GENERAL ANAESTHESIA

REACTIONS (1)
  - LEUKOENCEPHALOPATHY [None]
